FAERS Safety Report 5831258-X (Version None)
Quarter: 2008Q3

REPORT INFORMATION
  Report Type: 
  Country: None (occurrence: None)
  Receive Date: 20080801
  Receipt Date: 20080721
  Transmission Date: 20090109
  Serious: Yes (Other)
  Sender: FDA-Public Use
  Company Number: US-PFIZER INC-2008061121

PATIENT
  Sex: Female
  Weight: 68 kg

DRUGS (2)
  1. GEODON [Suspect]
     Indication: SCHIZOAFFECTIVE DISORDER
     Dates: start: 20060101, end: 20070101
  2. KLONOPIN [Concomitant]

REACTIONS (10)
  - CONVULSION [None]
  - DISCOMFORT [None]
  - EYE ROLLING [None]
  - GASTRIC DISORDER [None]
  - HYPOPHAGIA [None]
  - PAIN [None]
  - PARAESTHESIA [None]
  - RESTLESSNESS [None]
  - TREMOR [None]
  - WEIGHT DECREASED [None]
